FAERS Safety Report 11676463 (Version 3)
Quarter: 2017Q1

REPORT INFORMATION
  Report Type: Report from Study
  Country: None (occurrence: CA)
  Receive Date: 20151028
  Receipt Date: 20170318
  Transmission Date: 20170428
  Serious: Yes (Other)
  Sender: FDA-Public Use
  Company Number: CA-ABBVIE-15K-028-1384457-00

PATIENT
  Sex: Female
  Weight: 88.53 kg

DRUGS (4)
  1. METFORMIN [Concomitant]
     Active Substance: METFORMIN HYDROCHLORIDE
     Indication: DIABETES MELLITUS
  2. CLONIDINE. [Concomitant]
     Active Substance: CLONIDINE
     Indication: HYPERTENSION
  3. HUMIRA [Suspect]
     Active Substance: ADALIMUMAB
     Indication: CROHN^S DISEASE
     Route: 058
     Dates: start: 20110127, end: 201505
  4. HUMIRA [Suspect]
     Active Substance: ADALIMUMAB
     Indication: ANKYLOSING SPONDYLITIS
     Route: 058
     Dates: start: 2015, end: 2015

REACTIONS (5)
  - Carpal tunnel syndrome [Recovered/Resolved]
  - Mass [Unknown]
  - Back pain [Unknown]
  - Carpal tunnel syndrome [Not Recovered/Not Resolved]
  - Abdominal hernia [Not Recovered/Not Resolved]

NARRATIVE: CASE EVENT DATE: 2012
